FAERS Safety Report 10013218 (Version 3)
Quarter: 2014Q2

REPORT INFORMATION
  Report Type: Spontaneous
  Country: US (occurrence: US)
  Receive Date: 20140314
  Receipt Date: 20140414
  Transmission Date: 20141212
  Serious: Yes (Hospitalization, Other)
  Sender: FDA-Public Use
  Company Number: US-BAXTER-2014BAX011031

PATIENT
  Sex: Male

DRUGS (2)
  1. DIANEAL LOW CALCIUM [Suspect]
     Indication: PERITONEAL DIALYSIS
     Route: 033
     Dates: start: 20131101, end: 20140324
  2. DIANEAL LOW CALCIUM [Suspect]
     Indication: PERITONEAL DIALYSIS
     Route: 033
     Dates: start: 20131101, end: 20140324

REACTIONS (12)
  - Cardiac failure [Recovering/Resolving]
  - Cerebrovascular accident [Recovering/Resolving]
  - Thrombosis [Unknown]
  - Unevaluable event [Unknown]
  - Blood glucose abnormal [Unknown]
  - Coronary artery occlusion [Recovering/Resolving]
  - Obstruction [Recovering/Resolving]
  - Eye injury [Recovering/Resolving]
  - Concussion [Recovering/Resolving]
  - Device dislocation [Recovering/Resolving]
  - Head injury [Recovering/Resolving]
  - Decreased appetite [Recovering/Resolving]
